FAERS Safety Report 5677880-5 (Version None)
Quarter: 2008Q1

REPORT INFORMATION
  Report Type: 
  Country: None (occurrence: None)
  Receive Date: 20080319
  Receipt Date: 20080307
  Transmission Date: 20080703
  Serious: Yes (Hospitalization)
  Sender: FDA-Public Use
  Company Number: 232035J08USA

PATIENT
  Age: 22 Year
  Sex: Female
  Weight: 47.5 kg

DRUGS (1)
  1. REBIF [Suspect]
     Indication: MULTIPLE SCLEROSIS
     Dosage: 44 MCG, 3 IN 1 WEEKS, SUBCUTANEOUS
     Route: 058
     Dates: start: 20060401, end: 20080114

REACTIONS (2)
  - INJECTION SITE CELLULITIS [None]
  - INJECTION SITE DISCHARGE [None]
